FAERS Safety Report 7465687-8 (Version None)
Quarter: 2011Q2

REPORT INFORMATION
  Report Type: 
  Country: None (occurrence: None)
  Receive Date: 20110509
  Receipt Date: 20110427
  Transmission Date: 20111010
  Serious: Yes (Hospitalization, Disabling)
  Sender: FDA-Public Use
  Company Number: B0696326A

PATIENT
  Sex: Female

DRUGS (19)
  1. NISISCO [Concomitant]
     Dosage: 80MG PER DAY
     Route: 048
  2. IDEOS [Concomitant]
     Route: 048
     Dates: start: 20100414
  3. TARDYFERON [Concomitant]
     Route: 048
  4. GAVISCON [Concomitant]
     Dosage: 2SAC PER DAY
     Route: 048
     Dates: start: 20080529
  5. ZALDIAR [Concomitant]
     Route: 048
  6. BIAFINE [Concomitant]
     Route: 061
  7. MOPRAL [Concomitant]
     Dosage: 20MG PER DAY
     Route: 048
     Dates: start: 20100113
  8. DEXERYL (FRANCE) [Concomitant]
     Route: 061
  9. ATARAX [Concomitant]
     Dosage: 25MG AS REQUIRED
     Route: 048
  10. JANUVIA [Concomitant]
     Dosage: 1TAB PER DAY
     Route: 048
     Dates: start: 20100113
  11. GLUCOPHAGE [Concomitant]
     Dosage: 1000MG PER DAY
     Route: 048
  12. PROZAC [Concomitant]
     Dosage: 20MG PER DAY
     Route: 048
     Dates: start: 20091022
  13. LEVOTHYROX [Concomitant]
     Dosage: 112.5MCG PER DAY
     Route: 048
  14. CRESTOR [Concomitant]
     Dosage: 5MG PER DAY
     Route: 048
     Dates: start: 20100512
  15. AVANDAMET [Suspect]
     Route: 048
     Dates: start: 20040301, end: 20100801
  16. CELECTOL [Concomitant]
     Dosage: 1TAB PER DAY
     Route: 048
  17. NEXIUM [Concomitant]
     Dosage: 20MG PER DAY
     Route: 048
     Dates: start: 20100512
  18. DAFALGAN [Concomitant]
  19. LEXOMIL [Concomitant]
     Route: 048

REACTIONS (8)
  - DYSPNOEA [None]
  - FATIGUE [None]
  - MALAISE [None]
  - CHEST PAIN [None]
  - CYANOSIS [None]
  - TACHYCARDIA [None]
  - CARDIAC FAILURE [None]
  - TREMOR [None]
